FAERS Safety Report 12996605 (Version 1)
Quarter: 2016Q4

REPORT INFORMATION
  Report Type: Spontaneous
  Country: US (occurrence: US)
  Receive Date: 20161204
  Receipt Date: 20161204
  Transmission Date: 20170207
  Serious: No
  Sender: FDA-Public Use
  Company Number: US-ASTRAZENECA-2007BM13360

PATIENT
  Age: 58 Year
  Sex: Female
  Weight: 54.4 kg

DRUGS (8)
  1. LANTUS [Concomitant]
     Active Substance: INSULIN GLARGINE
     Indication: DIABETES MELLITUS
     Dosage: UNK
  2. BYETTA [Suspect]
     Active Substance: EXENATIDE
     Indication: INSULIN-REQUIRING TYPE 2 DIABETES MELLITUS
     Route: 058
     Dates: start: 200608, end: 200706
  3. EXENATIDE 10MCG PEN, DISPOSABLE DEVICE [Concomitant]
     Active Substance: EXENATIDE
  4. LISINOPRIL. [Concomitant]
     Active Substance: LISINOPRIL
  5. BYETTA [Suspect]
     Active Substance: EXENATIDE
     Indication: INSULIN-REQUIRING TYPE 2 DIABETES MELLITUS
     Route: 058
  6. SIMVASTATIN. [Concomitant]
     Active Substance: SIMVASTATIN
  7. BYETTA [Suspect]
     Active Substance: EXENATIDE
     Indication: INSULIN-REQUIRING TYPE 2 DIABETES MELLITUS
     Route: 058
     Dates: start: 200706
  8. BYETTA [Suspect]
     Active Substance: EXENATIDE
     Indication: INSULIN-REQUIRING TYPE 2 DIABETES MELLITUS
     Route: 058
     Dates: start: 200608, end: 200707

REACTIONS (14)
  - Weight decreased [Unknown]
  - Blood glucose decreased [Recovered/Resolved]
  - Product quality issue [Unknown]
  - Body height decreased [Unknown]
  - Nausea [Not Recovered/Not Resolved]
  - Heart rate decreased [Unknown]
  - Vomiting [Unknown]
  - Dyspnoea [Unknown]
  - Blood glucose increased [Unknown]
  - Feeling abnormal [Unknown]
  - Blood cholesterol increased [Unknown]
  - Injection site pain [Unknown]
  - Drug effect decreased [Unknown]
  - Underdose [Unknown]

NARRATIVE: CASE EVENT DATE: 2006
